FAERS Safety Report 8484012-7 (Version None)
Quarter: 2012Q2

REPORT INFORMATION
  Report Type: 
  Country: None (occurrence: None)
  Receive Date: 20120627
  Receipt Date: 20120627
  Transmission Date: 20120825
  Serious: Yes (Life-Threatening, Hospitalization, Other)
  Sender: FDA-Public Use
  Company Number: None

PATIENT
  Sex: Male
  Weight: 68.0396 kg

DRUGS (1)
  1. METHOTREXATE [Suspect]
     Indication: ARTHRITIS
     Dosage: 6 WEEKLY MOUTH

REACTIONS (5)
  - ASTHENIA [None]
  - IMPAIRED HEALING [None]
  - OROPHARYNGEAL PAIN [None]
  - FATIGUE [None]
  - BLOOD DISORDER [None]
